FAERS Safety Report 5023950-4 (Version None)
Quarter: 2006Q2

REPORT INFORMATION
  Report Type: 
  Country: None (occurrence: None)
  Receive Date: 20060607
  Receipt Date: 20060522
  Transmission Date: 20061013
  Serious: Yes (Other)
  Sender: FDA-Public Use
  Company Number: USA-2005-0020345

PATIENT
  Age: 43 Year
  Sex: Male

DRUGS (10)
  1. OXYCODONE HCL [Suspect]
     Dosage: SEE TEXT
  2. LORTAB [Concomitant]
  3. BENADRYL [Concomitant]
  4. SOMA [Concomitant]
  5. LOPRESSOR [Concomitant]
  6. LIPITOR [Concomitant]
  7. ASPIRIN [Concomitant]
  8. PRINIVIL [Concomitant]
  9. PRAVACHOL [Concomitant]
  10. XANAX [Concomitant]

REACTIONS (29)
  - ANXIETY [None]
  - BACK INJURY [None]
  - BACK PAIN [None]
  - BLOOD TESTOSTERONE DECREASED [None]
  - CARDIAC FAILURE CONGESTIVE [None]
  - CARPAL TUNNEL SYNDROME [None]
  - CONSTIPATION [None]
  - CORONARY ARTERY DISEASE [None]
  - DRUG DEPENDENCE [None]
  - EMOTIONAL DISTRESS [None]
  - GAIT DISTURBANCE [None]
  - HYPERHIDROSIS [None]
  - HYPOAESTHESIA [None]
  - INADEQUATE ANALGESIA [None]
  - INJURY [None]
  - MUSCULOSKELETAL STIFFNESS [None]
  - MYOCARDIAL INFARCTION [None]
  - NAUSEA [None]
  - PAIN [None]
  - PAIN IN EXTREMITY [None]
  - PARAESTHESIA [None]
  - PELVIC PAIN [None]
  - RASH [None]
  - ROAD TRAFFIC ACCIDENT [None]
  - SEDATION [None]
  - SKIN LACERATION [None]
  - SPINAL HAEMANGIOMA [None]
  - TESTICULAR PAIN [None]
  - UNEVALUABLE EVENT [None]
